FAERS Safety Report 7611747-8 (Version None)
Quarter: 2011Q3

REPORT INFORMATION
  Report Type: 
  Country: None (occurrence: None)
  Receive Date: 20110715
  Receipt Date: 20110705
  Transmission Date: 20111222
  Serious: Yes (Hospitalization)
  Sender: FDA-Public Use
  Company Number: PL-SANOFI-AVENTIS-2011SA043814

PATIENT
  Age: 70 Year
  Sex: Female
  Weight: 100 kg

DRUGS (4)
  1. ACENOCOUMAROL [Concomitant]
  2. ENALAPRIL MALEATE [Concomitant]
  3. DRONEDARONE HCL [Suspect]
     Indication: ATRIAL FIBRILLATION
     Route: 048
     Dates: start: 20110124, end: 20110317
  4. METOPROLOL TARTRATE [Concomitant]

REACTIONS (2)
  - PULMONARY EMBOLISM [None]
  - ISCHAEMIC STROKE [None]
